FAERS Safety Report 8168399-0 (Version None)
Quarter: 2012Q1

REPORT INFORMATION
  Report Type: 
  Country: None (occurrence: None)
  Receive Date: 20120227
  Receipt Date: 20120217
  Transmission Date: 20120608
  Serious: Yes (Life-Threatening, Other)
  Sender: FDA-Public Use
  Company Number: US-MERCK-1201USA03428

PATIENT
  Age: 18 Year
  Sex: Female
  Weight: 102 kg

DRUGS (5)
  1. FLOVENT [Concomitant]
     Indication: ASTHMA
     Route: 055
  2. SINGULAIR [Suspect]
     Route: 048
     Dates: end: 20100507
  3. ALBUTEROL [Concomitant]
     Route: 055
     Dates: start: 20120124
  4. SINGULAIR [Suspect]
     Indication: ASTHMA
     Route: 048
     Dates: start: 20100507, end: 20120124
  5. ALBUTEROL [Concomitant]
     Route: 055
     Dates: end: 20110510

REACTIONS (3)
  - OVERDOSE [None]
  - DEPRESSION [None]
  - SUICIDE ATTEMPT [None]
